FAERS Safety Report 22207391 (Version 1)
Quarter: 2023Q2

REPORT INFORMATION
  Report Type: Spontaneous
  Country: ES (occurrence: None)
  Receive Date: 20230413
  Receipt Date: 20230413
  Transmission Date: 20230721
  Serious: Yes (Hospitalization)
  Sender: FDA-Public Use
  Company Number: 2023A079481

PATIENT
  Age: 77 Year
  Sex: Female

DRUGS (4)
  1. QUETIAPINE [Interacting]
     Active Substance: QUETIAPINE
     Route: 048
     Dates: start: 20160211, end: 20230323
  2. RIVOTRIL [Interacting]
     Active Substance: CLONAZEPAM
     Route: 048
     Dates: start: 20200812, end: 20230323
  3. FENTANYL [Interacting]
     Active Substance: FENTANYL
     Indication: Arthralgia
     Route: 062
     Dates: start: 20230319, end: 20230323
  4. FENTANYL [Interacting]
     Active Substance: FENTANYL
     Indication: Arthralgia
     Dosage: 1 PARCHE CADA 72 HORAS
     Route: 062
     Dates: start: 20180523, end: 20230318

REACTIONS (3)
  - Respiratory failure [Not Recovered/Not Resolved]
  - Depressed level of consciousness [Not Recovered/Not Resolved]
  - Somnolence [Not Recovered/Not Resolved]

NARRATIVE: CASE EVENT DATE: 20230301
